FAERS Safety Report 12800004 (Version 1)
Quarter: 2016Q3

REPORT INFORMATION
  Report Type: Spontaneous
  Country: US (occurrence: US)
  Receive Date: 20160930
  Receipt Date: 20160930
  Transmission Date: 20161109
  Serious: Yes (Other)
  Sender: FDA-Public Use
  Company Number: US-TEVA-697225ACC

PATIENT
  Sex: Female
  Weight: 64.92 kg

DRUGS (1)
  1. PARAGARD T 380A [Suspect]
     Active Substance: COPPER
     Indication: CONTRACEPTION
     Dates: start: 20160812, end: 20160820

REACTIONS (3)
  - Exposure during breast feeding [Unknown]
  - Device dislocation [Recovered/Resolved]
  - Vaginal haemorrhage [Unknown]
